FAERS Safety Report 23799323 (Version 1)
Quarter: 2024Q2

REPORT INFORMATION
  Report Type: Spontaneous
  Country: US (occurrence: None)
  Receive Date: 20240428
  Receipt Date: 20240428
  Transmission Date: 20240716
  Serious: No
  Sender: FDA-Public Use
  Company Number: None

PATIENT
  Age: 86 Year
  Sex: Male

DRUGS (2)
  1. METOLAZONE [Suspect]
     Active Substance: METOLAZONE
     Dates: start: 20211109, end: 20230221
  2. FUROSEMIDE [Suspect]
     Active Substance: FUROSEMIDE
     Dates: start: 20211109

REACTIONS (2)
  - Atrial fibrillation [None]
  - Hypokalaemia [None]

NARRATIVE: CASE EVENT DATE: 20230219
